FAERS Safety Report 18806562 (Version 1)
Quarter: 2021Q1

REPORT INFORMATION
  Report Type: Other
  Country: CL (occurrence: CL)
  Receive Date: 20210129
  Receipt Date: 20210129
  Transmission Date: 20210419
  Serious: Yes (Other)
  Sender: FDA-Public Use
  Company Number: CL-ROCHE-2724134

PATIENT
  Age: 60 Year
  Sex: Female

DRUGS (1)
  1. KADCYLA [Suspect]
     Active Substance: ADO-TRASTUZUMAB EMTANSINE
     Indication: HER2 POSITIVE BREAST CANCER
     Dosage: DOSE WAS NOT REPORTED
     Route: 024
     Dates: start: 20201105

REACTIONS (14)
  - Thrombosis [Recovered/Resolved]
  - Tachycardia [Unknown]
  - Gingival bleeding [Recovered/Resolved]
  - Dehydration [Unknown]
  - Ear discomfort [Unknown]
  - Platelet count decreased [Recovered/Resolved]
  - Dry mouth [Unknown]
  - Nasal congestion [Unknown]
  - Oropharyngeal pain [Unknown]
  - Thrombocytopenia [Unknown]
  - Petechiae [Unknown]
  - Blood creatinine abnormal [Unknown]
  - Contusion [Recovered/Resolved]
  - Hyperglycaemia [Unknown]

NARRATIVE: CASE EVENT DATE: 20210114
